FAERS Safety Report 8084220 (Version 6)
Quarter: 2012Q4

REPORT INFORMATION
  Report Type: 
  Country: US (occurrence: US)
  Receive Date: 20110810
  Receipt Date: 20121005
  Transmission Date: 20130627
  Serious: Yes (Other)
  Sender: FDA-Public Use
  Company Number: PHEH2011US00797

PATIENT
  Age: 50 Year
  Sex: Female

DRUGS (1)
  1. GILENYA [Suspect]
     Indication: RELAPSING-REMITTING MULTIPLE SCLEROSIS
     Dosage: UNK
     Route: 048
     Dates: start: 200903

REACTIONS (8)
  - Breast mass [Not Recovered/Not Resolved]
  - Urinary tract infection [Not Recovered/Not Resolved]
  - Hypersensitivity [Unknown]
  - Laryngitis [Unknown]
  - White blood cell count decreased [Unknown]
  - Nasopharyngitis [Not Recovered/Not Resolved]
  - Sinusitis [Recovering/Resolving]
  - Malaise [Unknown]
